FAERS Safety Report 11869687 (Version 2)
Quarter: 2016Q1

REPORT INFORMATION
  Report Type: Spontaneous
  Country: IT (occurrence: IT)
  Receive Date: 20151228
  Receipt Date: 20160202
  Transmission Date: 20160526
  Serious: Yes (Hospitalization)
  Sender: FDA-Public Use
  Company Number: IT-009507513-1512ITA012045

PATIENT
  Age: 53 Year
  Sex: Male

DRUGS (3)
  1. REBETOL [Suspect]
     Active Substance: RIBAVIRIN
     Indication: CHRONIC HEPATITIS C
     Dosage: 1000MG, DAILY
     Route: 048
     Dates: start: 20150728, end: 20150807
  2. VIEKIRAX [Suspect]
     Active Substance: OMBITASVIR\PARITAPREVIR\RITONAVIR
     Indication: CHRONIC HEPATITIS C
     Dosage: STRENGTH: 12.5MG/75 MG/50 MG, TOTAL DAILY DOSE WAS REPORTED AS ^2 POSOLOGICAL UNITS^
     Route: 048
     Dates: start: 20150728, end: 20150807
  3. EXVIERA [Suspect]
     Active Substance: DASABUVIR
     Indication: CHRONIC HEPATITIS C
     Dosage: 2 POSOLOGICAL UNITS DAILY
     Route: 048
     Dates: start: 20150728, end: 20150807

REACTIONS (2)
  - Fluid imbalance [Recovered/Resolved with Sequelae]
  - Jaundice [Recovered/Resolved with Sequelae]

NARRATIVE: CASE EVENT DATE: 20150807
